FAERS Safety Report 6031951-2 (Version None)
Quarter: 2009Q1

REPORT INFORMATION
  Report Type: 
  Country: None (occurrence: None)
  Receive Date: 20090108
  Receipt Date: 20081226
  Transmission Date: 20090719
  Serious: Yes (Hospitalization)
  Sender: FDA-Public Use
  Company Number: US-PFIZER INC-2008159344

PATIENT
  Sex: Female
  Weight: 63.502 kg

DRUGS (8)
  1. CELEBREX [Suspect]
     Indication: ARTHRITIS
     Dosage: UNIT DOSE: UNKNOWN;
     Dates: start: 20040101
  2. CELEBREX [Suspect]
     Indication: CHONDROCALCINOSIS PYROPHOSPHATE
  3. CELEBREX [Suspect]
     Indication: FIBROMYALGIA
  4. CELEBREX [Suspect]
     Indication: ARTHRALGIA
  5. CELEBREX [Suspect]
     Indication: PAIN IN JAW
  6. GABAPENTIN [Concomitant]
  7. PREGABALIN [Concomitant]
  8. ALPRAZOLAM [Suspect]

REACTIONS (4)
  - CONVULSION [None]
  - DYSPNOEA [None]
  - MYOCARDIAL INFARCTION [None]
  - SHOCK [None]
